FAERS Safety Report 6173974-9 (Version None)
Quarter: 2009Q2

REPORT INFORMATION
  Report Type: 
  Country: None (occurrence: None)
  Receive Date: 20090429
  Receipt Date: 20090429
  Transmission Date: 20091009
  Serious: Yes (Other)
  Sender: FDA-Public Use
  Company Number: None

PATIENT
  Age: 4 Year
  Sex: Male
  Weight: 15.4223 kg

DRUGS (2)
  1. SINGULAIR [Suspect]
     Indication: ASTHMA
     Dosage: 1 TAB AT BEDTIME 1X DAY PO
     Route: 048
     Dates: start: 20090303, end: 20090426
  2. SINGULAIR [Suspect]
     Indication: SEASONAL ALLERGY
     Dosage: 1 TAB AT BEDTIME 1X DAY PO
     Route: 048
     Dates: start: 20090303, end: 20090426

REACTIONS (9)
  - ABDOMINAL PAIN UPPER [None]
  - AGGRESSION [None]
  - CRYING [None]
  - DEPRESSION [None]
  - FEELING ABNORMAL [None]
  - HOMICIDAL IDEATION [None]
  - MOOD ALTERED [None]
  - MORBID THOUGHTS [None]
  - NIGHTMARE [None]
